FAERS Safety Report 6153766-7 (Version None)
Quarter: 2009Q2

REPORT INFORMATION
  Report Type: 
  Country: None (occurrence: None)
  Receive Date: 20090410
  Receipt Date: 20090331
  Transmission Date: 20091009
  Serious: Yes (Disabling)
  Sender: FDA-Public Use
  Company Number: APP200900177

PATIENT
  Age: 32 Year
  Sex: Male

DRUGS (6)
  1. SENSORCAINE [Suspect]
     Indication: MUSCULOSKELETAL PAIN
     Dosage: 275 ML, CONTINUOUS VIA PUMP, INTRA-ARTICULAR
     Route: 014
     Dates: start: 20050615
  2. DONJOY PAIN PUMP [Suspect]
     Indication: MUSCULOSKELETAL PAIN
     Dates: start: 20050615
  3. LIDOCAINE WITH EPINEPHRINE (OCTOCAINE WITH EPINEPHRINE) [Suspect]
     Dosage: 10 ML, JOINT INSUFFLATION
     Dates: start: 20050615
  4. MARCAINE WITH EPINEPHRINE (MARCAINE WITH EPINEPHRINE /00879801/) [Suspect]
     Indication: MUSCULOSKELETAL PAIN
     Dosage: INTRA-ARTICULAR, 30 ML
     Route: 014
     Dates: start: 20050615
  5. MARCAINE WITH EPINEPHRINE (MARCAINE WITH EPINEPHRINE /00879801/) [Suspect]
     Indication: MUSCULOSKELETAL PAIN
     Dosage: INTRA-ARTICULAR, 30 ML
     Route: 014
     Dates: start: 20050615
  6. ANTIBIOTIC (CHLORAMPHENICOL) [Concomitant]

REACTIONS (2)
  - CHONDROLYSIS [None]
  - MUSCULOSKELETAL PAIN [None]
